FAERS Safety Report 8522452-8 (Version None)
Quarter: 2012Q3

REPORT INFORMATION
  Report Type: 
  Country: None (occurrence: None)
  Receive Date: 20120706
  Receipt Date: 20120621
  Transmission Date: 20120928
  Serious: Yes (Death)
  Sender: FDA-Public Use
  Company Number: TCI2012A00186

PATIENT
  Age: 77 Year
  Sex: Male

DRUGS (12)
  1. LORAZEPAM [Concomitant]
  2. GRANDAXIN (TOFISOPAM) [Concomitant]
  3. ZOLPIDEM TARTRATE [Concomitant]
  4. SLOW-K [Concomitant]
  5. DESYREL [Concomitant]
  6. LENDORM [Concomitant]
  7. ROZEREM [Suspect]
     Indication: INSOMNIA
     Dosage: 8 MG (8 MG, 1 I N1 D), PER ORAL
     Route: 048
     Dates: start: 20111125, end: 20120109
  8. RIZE (CLOTIAZEPAM) [Concomitant]
  9. PIMENOL (PIRMENOL HYDROCHLORIDE) [Concomitant]
  10. PURSENNID (SENNOSIDE A+B) [Concomitant]
  11. ALDACTONE [Concomitant]
  12. DEPAS (ETIZOLAM) [Concomitant]

REACTIONS (2)
  - ELECTROCARDIOGRAM QT PROLONGED [None]
  - CARDIO-RESPIRATORY ARREST [None]
